FAERS Safety Report 5874818-2 (Version None)
Quarter: 2008Q3

REPORT INFORMATION
  Report Type: 
  Country: None (occurrence: None)
  Receive Date: 20080909
  Receipt Date: 20080829
  Transmission Date: 20090109
  Serious: Yes (Death, Hospitalization, Disabling, Other)
  Sender: FDA-Public Use
  Company Number: US-BAYER-200829738NA

PATIENT
  Age: 60 Year
  Sex: Female
  Weight: 50 kg

DRUGS (11)
  1. CIPRO [Suspect]
     Indication: URINARY TRACT INFECTION
     Dosage: TOTAL DAILY DOSE: 1000 MG  UNIT DOSE: 500 MG
     Dates: start: 20071215, end: 20071218
  2. CYMBALTA [Concomitant]
     Dosage: AS USED: 30 MG
     Route: 048
  3. DITROPAN XL [Concomitant]
     Dosage: TOTAL DAILY DOSE: 10 MG
     Route: 048
  4. GABAPENTIN [Concomitant]
     Dosage: TOTAL DAILY DOSE: 300 MG
  5. LUNESTA [Concomitant]
     Dosage: TOTAL DAILY DOSE: 1 DF
     Route: 048
  6. ALEVE [Concomitant]
     Dosage: UNIT DOSE: 220 MG
     Route: 048
  7. MAGNESIUM SULFATE [Concomitant]
     Dosage: TOTAL DAILY DOSE: 5 ML
  8. OXYBUTYNIN [Concomitant]
     Dosage: TOTAL DAILY DOSE: 10 MG
  9. MIRALAX [Concomitant]
     Dates: end: 20071215
  10. AMBIEN [Concomitant]
     Dosage: AS USED: 10 MG
     Dates: end: 20071217
  11. PROTONIX [Concomitant]
     Dosage: TOTAL DAILY DOSE: 40 MG
     Route: 048

REACTIONS (20)
  - ABDOMINAL PAIN UPPER [None]
  - AMYOTROPHIC LATERAL SCLEROSIS [None]
  - BLOOD PRESSURE INCREASED [None]
  - CONSTIPATION [None]
  - DEPRESSION [None]
  - DIARRHOEA [None]
  - DYSPNOEA [None]
  - FAECALOMA [None]
  - FATIGUE [None]
  - GASTRITIS [None]
  - GASTROENTERITIS [None]
  - HYPOKALAEMIA [None]
  - HYPOPHAGIA [None]
  - MOBILITY DECREASED [None]
  - MUSCULAR WEAKNESS [None]
  - NAUSEA [None]
  - PAIN [None]
  - RETCHING [None]
  - VOMITING [None]
  - WEIGHT DECREASED [None]
